FAERS Safety Report 7654312-9 (Version None)
Quarter: 2011Q3

REPORT INFORMATION
  Report Type: 
  Country: None (occurrence: None)
  Receive Date: 20110803
  Receipt Date: 20110726
  Transmission Date: 20111222
  Serious: Yes (Hospitalization, Other)
  Sender: FDA-Public Use
  Company Number: US-BAYER-2011-023910

PATIENT
  Age: 25 Year
  Sex: Female

DRUGS (1)
  1. YAZ [Suspect]
     Dosage: UNK
     Dates: start: 20050101, end: 20050301

REACTIONS (5)
  - DEEP VEIN THROMBOSIS [None]
  - THROMBOSIS [None]
  - PULMONARY EMBOLISM [None]
  - PAIN [None]
  - INJURY [None]
